FAERS Safety Report 9563528 (Version 1)
Quarter: 2013Q3

REPORT INFORMATION
  Report Type: Spontaneous
  Country: US (occurrence: None)
  Receive Date: 20130926
  Receipt Date: 20130926
  Transmission Date: 20140515
  Serious: Yes (Hospitalization)
  Sender: FDA-Public Use
  Company Number: None

PATIENT
  Age: 43 Year
  Sex: Female
  Weight: 58.7 kg

DRUGS (1)
  1. CHOLECALCIFEROL [Suspect]
     Dosage: 2000 UNITS

REACTIONS (3)
  - Vaginal haematoma [None]
  - Pelvic infection [None]
  - Hysterectomy [None]
